FAERS Safety Report 4849749-7 (Version None)
Quarter: 2005Q4

REPORT INFORMATION
  Report Type: 
  Country: None (occurrence: None)
  Receive Date: 20051115
  Receipt Date: 20050916
  Transmission Date: 20060501
  Serious: No
  Sender: FDA-Public Use
  Company Number: S05-USA-04345-01

PATIENT
  Age: 94 Year
  Sex: Female

DRUGS (2)
  1. NAMENDA [Suspect]
     Indication: DEMENTIA
     Dates: start: 20050817, end: 20050101
  2. MULTIPLE MEDICATIONS (NOS) [Concomitant]

REACTIONS (2)
  - FEELING ABNORMAL [None]
  - IRRITABILITY [None]
